FAERS Safety Report 15958789 (Version 2)
Quarter: 2019Q1

REPORT INFORMATION
  Report Type: Report from Study
  Country: None (occurrence: BR)
  Receive Date: 20190213
  Receipt Date: 20190219
  Transmission Date: 20190417
  Serious: Yes (Death)
  Sender: FDA-Public Use
  Company Number: BR-ABBVIE-19K-020-2664689-00

PATIENT
  Age: 52 Year
  Sex: Male
  Weight: 123 kg

DRUGS (4)
  1. LOSARTAN. [Concomitant]
     Active Substance: LOSARTAN
     Indication: DIABETES MELLITUS
  2. HUMIRA [Suspect]
     Active Substance: ADALIMUMAB
     Indication: RHEUMATOID ARTHRITIS
     Route: 058
     Dates: start: 20100103
  3. METFORMIN [Concomitant]
     Active Substance: METFORMIN HYDROCHLORIDE
     Indication: DIABETES MELLITUS
  4. DICLOFENAC SODIUM. [Concomitant]
     Active Substance: DICLOFENAC SODIUM
     Indication: PAIN

REACTIONS (4)
  - Cardiomegaly [Fatal]
  - Weight decreased [Not Recovered/Not Resolved]
  - Renal impairment [Fatal]
  - Pain [Not Recovered/Not Resolved]

NARRATIVE: CASE EVENT DATE: 201505
